FAERS Safety Report 8286985-4 (Version None)
Quarter: 2012Q2

REPORT INFORMATION
  Report Type: 
  Country: None (occurrence: None)
  Receive Date: 20120416
  Receipt Date: 20120406
  Transmission Date: 20120825
  Serious: Yes (Other)
  Sender: FDA-Public Use
  Company Number: US-BAYER-2012-000910

PATIENT
  Age: 31 Year
  Sex: Female
  Weight: 106.12 kg

DRUGS (8)
  1. YAZ [Suspect]
     Indication: PREMENSTRUAL SYNDROME
  2. ADACEL [Concomitant]
  3. NAPROXEN (ALEVE) [Concomitant]
     Dosage: UNK UNK, BID
  4. MENINGOCOCCAL VACCINES [Concomitant]
  5. MUCINEX [Concomitant]
  6. ZITHROMAX [Concomitant]
  7. YAZ [Suspect]
     Indication: MENSTRUATION IRREGULAR
     Dosage: UNK
     Dates: start: 20060926, end: 20071024
  8. IBUPROFEN [Concomitant]

REACTIONS (9)
  - OEDEMA PERIPHERAL [None]
  - DEEP VEIN THROMBOSIS [None]
  - ANXIETY [None]
  - MENTAL DISORDER [None]
  - PAIN [None]
  - INJURY [None]
  - EMOTIONAL DISTRESS [None]
  - PAIN IN EXTREMITY [None]
  - GENERAL PHYSICAL HEALTH DETERIORATION [None]
